FAERS Safety Report 6541940-7 (Version None)
Quarter: 2010Q1

REPORT INFORMATION
  Report Type: 
  Country: None (occurrence: None)
  Receive Date: 20100119
  Receipt Date: 20100107
  Transmission Date: 20100710
  Serious: Yes (Other)
  Sender: FDA-Public Use
  Company Number: US-JNJCH-2009030208

PATIENT
  Sex: Female

DRUGS (3)
  1. VISINE TOTALITY MULTI-SYMPTOM RELIEF [Suspect]
     Indication: DRY EYE
     Dosage: TEXT:UNSPECIFIED
     Route: 047
  2. MULTI-VITAMINS [Concomitant]
     Indication: VITAMIN SUPPLEMENTATION
     Dosage: TEXT:UNSPECIFIED
     Route: 065
  3. CALCIUM [Concomitant]
     Indication: MINERAL SUPPLEMENTATION
     Dosage: TEXT:UNSPECIFIED
     Route: 065

REACTIONS (5)
  - DERMATITIS CONTACT [None]
  - DRUG HYPERSENSITIVITY [None]
  - EYE IRRITATION [None]
  - EYE SWELLING [None]
  - HYPERSENSITIVITY [None]
